FAERS Safety Report 15370573 (Version 2)
Quarter: 2022Q2

REPORT INFORMATION
  Report Type: Spontaneous
  Country: US (occurrence: US)
  Receive Date: 20180911
  Receipt Date: 20220416
  Transmission Date: 20220721
  Serious: Yes (Other)
  Sender: FDA-Public Use
  Company Number: US-TEVA-2018-US-952577

PATIENT
  Age: 9 Year
  Sex: Male

DRUGS (12)
  1. PREDNISONE [Suspect]
     Active Substance: PREDNISONE
     Indication: Diffuse large B-cell lymphoma
     Dosage: 60 MG/M2 DAILY; ON DAY 1-7
     Route: 048
  2. PREDNISONE [Suspect]
     Active Substance: PREDNISONE
     Indication: Monoclonal gammopathy
     Dosage: FIVE DAYS OF PULSE THERAPY EVERY THREE WEEKS
     Route: 065
  3. METHOTREXATE [Suspect]
     Active Substance: METHOTREXATE
     Indication: Diffuse large B-cell lymphoma
     Dosage: 15 MILLIGRAM DAILY; ON DAY 1 OF COP (CYCLE 1); DAYS 2 AND 6 OF INDUCTION PHASE: COPADM (CYCLE 2)
     Route: 037
  4. METHOTREXATE [Suspect]
     Active Substance: METHOTREXATE
     Dosage: 1.5G/M2 ON DAY 1
     Route: 042
  5. DOXORUBICIN [Suspect]
     Active Substance: DOXORUBICIN
     Indication: Diffuse large B-cell lymphoma
     Dosage: ON DAY 2 OF INDUCTION PHASE: COPADM (CYCLE 2)
     Route: 042
  6. VINCRISTINE [Suspect]
     Active Substance: VINCRISTINE
     Indication: Diffuse large B-cell lymphoma
     Dosage: ON DAY 1
     Route: 042
  7. CYCLOPHOSPHAMIDE [Suspect]
     Active Substance: CYCLOPHOSPHAMIDE
     Indication: Diffuse large B-cell lymphoma
     Dosage: ON DAY 1; COP (CYCLE 1)
     Route: 042
  8. CYCLOPHOSPHAMIDE [Suspect]
     Active Substance: CYCLOPHOSPHAMIDE
     Indication: Monoclonal gammopathy
     Dosage: DAYS 2-4 ;INDUCTION PHASE: COPADM (CYCLE 2)
     Route: 042
  9. CYCLOPHOSPHAMIDE [Suspect]
     Active Substance: CYCLOPHOSPHAMIDE
     Route: 065
  10. HYDROCORTISONE [Suspect]
     Active Substance: HYDROCORTISONE
     Indication: Diffuse large B-cell lymphoma
     Dosage: 15 MILLIGRAM DAILY; ON DAY 1 OF COP (CYCLE 1); DAYS 2 AND 6 OF INDUCTION PHASE: COPADM (CYCLE 2)
     Route: 037
  11. VINBLASTINE [Suspect]
     Active Substance: VINBLASTINE
     Indication: Diffuse large B-cell lymphoma
     Dosage: DAY 1
     Route: 042
  12. RITUXIMAB [Suspect]
     Active Substance: RITUXIMAB
     Indication: Monoclonal gammopathy
     Dosage: SIX CYCLES
     Route: 065

REACTIONS (6)
  - Neutropenia [Unknown]
  - Hepatic enzyme increased [Unknown]
  - Mucosal inflammation [Unknown]
  - Pyrexia [Unknown]
  - Cryptococcal fungaemia [Unknown]
  - BK virus infection [Unknown]
